FAERS Safety Report 7472323-3 (Version None)
Quarter: 2011Q2

REPORT INFORMATION
  Report Type: 
  Country: None (occurrence: None)
  Receive Date: 20110511
  Receipt Date: 20110505
  Transmission Date: 20111010
  Serious: Yes (Death, Other)
  Sender: FDA-Public Use
  Company Number: SE-ASTELLAS-2011EU002584

PATIENT
  Age: 16 Year
  Sex: Male

DRUGS (4)
  1. PREDNISOLONE [Suspect]
     Indication: GRAFT VERSUS HOST DISEASE
     Dosage: UNK
     Route: 065
  2. TACROLIMUS [Suspect]
     Dosage: UNK
     Route: 048
  3. TACROLIMUS [Suspect]
     Indication: STEM CELL TRANSPLANT
     Dosage: 0.4 MG/KG, UNKNOWN/D
     Route: 042
  4. SULFAMETHOXAZOLE AND TRIMETHOPRIM [Concomitant]
     Indication: PROPHYLAXIS
     Dosage: UNK
     Route: 065

REACTIONS (4)
  - DRUG INEFFECTIVE FOR UNAPPROVED INDICATION [None]
  - ADENOVIRUS INFECTION [None]
  - PNEUMONITIS [None]
  - EPSTEIN-BARR VIRUS INFECTION [None]
